FAERS Safety Report 8385550 (Version 4)
Quarter: 2012Q4

REPORT INFORMATION
  Report Type: 
  Country: US (occurrence: US)
  Receive Date: 20120202
  Receipt Date: 20121017
  Transmission Date: 20130627
  Serious: Yes (Hospitalization, Other)
  Sender: FDA-Public Use
  Company Number: US-009507513-1202USA00035

PATIENT

DRUGS (4)
  1. FOSAMAX [Suspect]
     Indication: OSTEOPOROSIS PROPHYLAXIS
     Dosage: 10 mg, qd
     Route: 048
     Dates: start: 19960612, end: 200408
  2. VITAMIN D (UNSPECIFIED) [Concomitant]
     Dosage: UNK
     Dates: start: 1996, end: 2010
  3. CALCIUM (UNSPECIFIED) [Concomitant]
     Dosage: UNK
     Dates: start: 1996, end: 2010
  4. ACTONEL [Concomitant]
     Indication: OSTEOPOROSIS

REACTIONS (16)
  - Femur fracture [Unknown]
  - Renal mass [Unknown]
  - Tooth disorder [Unknown]
  - Tooth extraction [Unknown]
  - Arthritis [Not Recovered/Not Resolved]
  - Osteoporosis [Unknown]
  - Glaucoma [Unknown]
  - Cataract [Recovered/Resolved]
  - Rectal polyp [Unknown]
  - Cataract operation [Recovered/Resolved]
  - Foot deformity [Unknown]
  - Arthrodesis [Unknown]
  - Osteoarthritis [Unknown]
  - Rectal prolapse [Unknown]
  - Haemorrhoids [Unknown]
  - Faecal incontinence [Unknown]
